FAERS Safety Report 20768975 (Version 1)
Quarter: 2022Q2

REPORT INFORMATION
  Report Type: Spontaneous
  Country: US (occurrence: US)
  Receive Date: 20220429
  Receipt Date: 20220429
  Transmission Date: 20220721
  Serious: No
  Sender: FDA-Public Use
  Company Number: US-TARO-2021TAR01263

PATIENT

DRUGS (1)
  1. FLUOROURACIL [Suspect]
     Active Substance: FLUOROURACIL
     Indication: Squamous cell carcinoma
     Dosage: UNK UNK, BID, MORNING AND NIGHT
     Route: 061

REACTIONS (3)
  - Constipation [Recovering/Resolving]
  - Adverse reaction [Recovered/Resolved]
  - Off label use [Unknown]
